FAERS Safety Report 9473983 (Version 1)
Quarter: 2013Q3

REPORT INFORMATION
  Report Type: Spontaneous
  Country: IT (occurrence: IT)
  Receive Date: 20130823
  Receipt Date: 20130823
  Transmission Date: 20140515
  Serious: Yes (Hospitalization)
  Sender: FDA-Public Use
  Company Number: IT-TEVA-427578ISR

PATIENT
  Age: 45 Year
  Sex: Female

DRUGS (4)
  1. LEVOFLOXACIN [Suspect]
     Indication: STAPHYLOCOCCAL INFECTION
     Dosage: 500 MILLIGRAM DAILY;
     Route: 041
  2. LEVOFLOXACIN [Suspect]
     Indication: ABDOMINAL INFECTION
  3. ERTAPENEM [Concomitant]
     Indication: STAPHYLOCOCCAL INFECTION
     Dosage: 1 GRAM DAILY;
     Route: 041
  4. ERTAPENEM [Concomitant]
     Indication: ABDOMINAL INFECTION

REACTIONS (3)
  - Convulsion [Recovering/Resolving]
  - Loss of consciousness [Unknown]
  - Psychomotor retardation [Unknown]
